FAERS Safety Report 7247019-3 (Version None)
Quarter: 2011Q1

REPORT INFORMATION
  Report Type: 
  Country: None (occurrence: None)
  Receive Date: 20110127
  Receipt Date: 20110124
  Transmission Date: 20110831
  Serious: Yes (Life-Threatening)
  Sender: FDA-Public Use
  Company Number: DE-JNJFOC-20100706695

PATIENT
  Age: 7 Decade
  Sex: Male

DRUGS (5)
  1. CLOPIDOGREL [Concomitant]
     Indication: MYOCARDIAL INFARCTION
  2. REOPRO [Suspect]
     Route: 042
  3. ASPIRIN [Concomitant]
     Indication: MYOCARDIAL INFARCTION
  4. HEPARIN [Concomitant]
     Indication: MYOCARDIAL INFARCTION
  5. REOPRO [Suspect]
     Indication: MYOCARDIAL INFARCTION
     Route: 042

REACTIONS (2)
  - CARDIAC TAMPONADE [None]
  - GASTROINTESTINAL HAEMORRHAGE [None]
